FAERS Safety Report 9495377 (Version 1)
Quarter: 2013Q3

REPORT INFORMATION
  Report Type: Spontaneous
  Country: JP (occurrence: JP)
  Receive Date: 20130903
  Receipt Date: 20130903
  Transmission Date: 20140515
  Serious: Yes (Life-Threatening)
  Sender: FDA-Public Use
  Company Number: JP-GLAXOSMITHKLINE-B0919297A

PATIENT
  Age: 16 Year
  Sex: Male

DRUGS (1)
  1. PAXIL [Suspect]
     Indication: OBSESSIVE THOUGHTS
     Dosage: 25MG PER DAY
     Route: 048

REACTIONS (2)
  - Activation syndrome [Recovered/Resolved]
  - Abnormal behaviour [Unknown]
